FAERS Safety Report 26133630 (Version 1)
Quarter: 2025Q4

REPORT INFORMATION
  Report Type: Spontaneous
  Country: CN (occurrence: CN)
  Receive Date: 20251209
  Receipt Date: 20251209
  Transmission Date: 20260118
  Serious: No
  Sender: ALKEM
  Company Number: None

PATIENT
  Sex: Female

DRUGS (5)
  1. VANCOMYCIN [Suspect]
     Active Substance: VANCOMYCIN
     Indication: Clostridium difficile infection
     Dosage: 40 MICROGRAM/KILOGRAM, QD
     Route: 048
     Dates: start: 201903
  2. VANCOMYCIN [Suspect]
     Active Substance: VANCOMYCIN
     Dosage: 34 MILLIGRAM, QID
     Route: 048
  3. METRONIDAZOLE [Concomitant]
     Active Substance: METRONIDAZOLE
     Indication: Clostridium difficile infection
     Dosage: 20 MILLIGRAM, TID (FOR 21 DAYS)
     Route: 065
  4. METRONIDAZOLE [Concomitant]
     Active Substance: METRONIDAZOLE
     Dosage: 25 MILLIGRAM, BID
     Route: 042
  5. METRONIDAZOLE [Concomitant]
     Active Substance: METRONIDAZOLE
     Dosage: 25 MILLIGRAM, BID (ORALLY FOR 1 WEEK)
     Route: 048

REACTIONS (1)
  - Eosinophilia [Recovering/Resolving]
